FAERS Safety Report 15694041 (Version 14)
Quarter: 2020Q4

REPORT INFORMATION
  Report Type: Report from Study
  Country: FR (occurrence: FR)
  Receive Date: 20181206
  Receipt Date: 20201123
  Transmission Date: 20210113
  Serious: Yes (Hospitalization, Other)
  Sender: FDA-Public Use
  Company Number: FR-EISAI MEDICAL RESEARCH-EC-2018-048619

PATIENT
  Age: 55 Year
  Sex: Male
  Weight: 84 kg

DRUGS (23)
  1. PEMBROLIZUMAB. [Suspect]
     Active Substance: PEMBROLIZUMAB
     Indication: HEPATOCELLULAR CARCINOMA
     Route: 041
     Dates: start: 20181115, end: 20181206
  2. PEMBROLIZUMAB. [Suspect]
     Active Substance: PEMBROLIZUMAB
     Route: 041
     Dates: start: 20200824, end: 20200824
  3. NOVORAPID [Concomitant]
     Active Substance: INSULIN ASPART
  4. TIORFAN [Concomitant]
     Active Substance: RACECADOTRIL
  5. LENVATINIB [Suspect]
     Active Substance: LENVATINIB
     Indication: HEPATOCELLULAR CARCINOMA
     Route: 048
     Dates: start: 20181115, end: 20181121
  6. LENVATINIB [Suspect]
     Active Substance: LENVATINIB
     Route: 048
     Dates: start: 20200224, end: 20200329
  7. PEMBROLIZUMAB. [Suspect]
     Active Substance: PEMBROLIZUMAB
     Route: 041
     Dates: start: 20191017, end: 20200217
  8. TIXTAR [Concomitant]
     Active Substance: RIFAXIMIN
  9. SMECTA [Concomitant]
     Active Substance: MONTMORILLONITE
  10. LENVATINIB [Suspect]
     Active Substance: LENVATINIB
     Route: 048
     Dates: start: 20181122, end: 20181128
  11. LENVATINIB [Suspect]
     Active Substance: LENVATINIB
     Route: 048
     Dates: start: 20200820, end: 20200909
  12. PEMBROLIZUMAB. [Suspect]
     Active Substance: PEMBROLIZUMAB
     Route: 041
     Dates: start: 20190523, end: 2019
  13. DUPHALAC [Concomitant]
     Active Substance: LACTULOSE
  14. DOLIPRANE [Concomitant]
     Active Substance: ACETAMINOPHEN
  15. LENVATINIB [Suspect]
     Active Substance: LENVATINIB
     Route: 048
     Dates: start: 20200928
  16. PEMBROLIZUMAB. [Suspect]
     Active Substance: PEMBROLIZUMAB
     Route: 041
     Dates: start: 20181227, end: 20190228
  17. PEMBROLIZUMAB. [Suspect]
     Active Substance: PEMBROLIZUMAB
     Route: 041
     Dates: start: 20201005
  18. LENVATINIB [Suspect]
     Active Substance: LENVATINIB
     Route: 048
     Dates: start: 20200414, end: 20200816
  19. ACUPAN [Concomitant]
     Active Substance: NEFOPAM HYDROCHLORIDE
  20. LENVATINIB [Suspect]
     Active Substance: LENVATINIB
     Route: 048
     Dates: start: 20181220, end: 20190218
  21. LENVATINIB [Suspect]
     Active Substance: LENVATINIB
     Route: 048
     Dates: start: 20190321, end: 20191008
  22. LENVATINIB [Suspect]
     Active Substance: LENVATINIB
     Route: 048
     Dates: start: 20191017, end: 20200216
  23. LANTUS [Concomitant]
     Active Substance: INSULIN GLARGINE

REACTIONS (6)
  - Pyrexia [Recovered/Resolved]
  - Hepatic encephalopathy [Recovered/Resolved]
  - Haemoptysis [Recovered/Resolved]
  - Blood bilirubin increased [Not Recovered/Not Resolved]
  - Intra-abdominal fluid collection [Recovered/Resolved]
  - Asthenia [Recovered/Resolved]

NARRATIVE: CASE EVENT DATE: 20181129
